FAERS Safety Report 11363087 (Version 1)
Quarter: 2015Q3

REPORT INFORMATION
  Report Type: Spontaneous
  Country: DE (occurrence: None)
  Receive Date: 20150807
  Receipt Date: 20150807
  Transmission Date: 20151125
  Serious: Yes (Life-Threatening)
  Sender: FDA-Public Use
  Company Number: DE-AGG-07-2015-0606

PATIENT
  Age: 62 Year
  Sex: Male
  Weight: 83 kg

DRUGS (7)
  1. METFORMIN [Concomitant]
     Active Substance: METFORMIN HYDROCHLORIDE
  2. TIROFIBAN HCI [Suspect]
     Active Substance: TIROFIBAN HYDROCHLORIDE
     Indication: ANTIPLATELET THERAPY
     Dosage: 1 X 16 ML EVERY 1 HOUR(S) INTRAVENOUS
     Route: 042
     Dates: start: 20070611, end: 20070612
  3. TROSPIUM CHLORIDE. [Concomitant]
     Active Substance: TROSPIUM CHLORIDE
  4. DULOXETINE. [Concomitant]
     Active Substance: DULOXETINE
  5. TIROFIBAN HCI [Suspect]
     Active Substance: TIROFIBAN HYDROCHLORIDE
     Indication: ANTIPLATELET THERAPY
     Dosage: 1 X 9 ML EVERY 1 DAY(S) INTRAVENOUS B
     Route: 040
     Dates: start: 20070611, end: 20070611
  6. DICLOFENAC [Concomitant]
     Active Substance: DICLOFENAC
  7. INSULIN [Concomitant]
     Active Substance: INSULIN NOS

REACTIONS (1)
  - Hypotension [None]

NARRATIVE: CASE EVENT DATE: 20070611
